FAERS Safety Report 8504629-0 (Version None)
Quarter: 2012Q3

REPORT INFORMATION
  Report Type: 
  Country: None (occurrence: None)
  Receive Date: 20120711
  Receipt Date: 20120702
  Transmission Date: 20120928
  Serious: Yes (Other)
  Sender: FDA-Public Use
  Company Number: ES-GILEAD-2012-0057358

PATIENT
  Age: 49 Year
  Sex: Male

DRUGS (6)
  1. ZIDOVUDINA COMBINO PHARM [Concomitant]
     Indication: HIV INFECTION
     Dosage: 300 MG, UNK
     Dates: start: 20090729
  2. LAMICTAL [Concomitant]
     Indication: EPILEPSY
     Dosage: 50 MG, UNK
     Dates: start: 20060313, end: 20111122
  3. VIREAD [Suspect]
     Indication: HIV INFECTION
     Dosage: 245 MG, QD
     Dates: start: 20090729, end: 20111122
  4. ALPRAZOLAM [Concomitant]
     Indication: DEPENDENCE
     Dosage: UNK
     Dates: start: 20070206
  5. KALETRA [Concomitant]
     Indication: HIV INFECTION
     Dosage: UNK
     Dates: start: 20090729
  6. METHADONE HCL [Concomitant]
     Indication: DEPENDENCE
     Dosage: UNK
     Dates: start: 20070206

REACTIONS (1)
  - OSTEOPOROSIS [None]
